FAERS Safety Report 9617554 (Version 1)
Quarter: 2013Q4

REPORT INFORMATION
  Report Type: Spontaneous
  Country: US (occurrence: None)
  Receive Date: 20131009
  Receipt Date: 20131009
  Transmission Date: 20140711
  Serious: Yes (Hospitalization)
  Sender: FDA-Public Use
  Company Number: 201309036

PATIENT
  Age: 75 Year
  Sex: Female

DRUGS (1)
  1. XIAFLEX (CLOSTRADIAL COLLAGENASE) (CLOSTRADIAL COLLAGENASE) [Suspect]
     Dosage: INTRALESIONAL
     Dates: start: 20130924, end: 20130924

REACTIONS (1)
  - Gastrointestinal ulcer haemorrhage [None]
